FAERS Safety Report 15318561 (Version 1)
Quarter: 2018Q3

REPORT INFORMATION
  Report Type: Spontaneous
  Country: US (occurrence: US)
  Receive Date: 20180817
  Receipt Date: 20180817
  Transmission Date: 20181010
  Serious: No
  Sender: FDA-Public Use
  Company Number: None

PATIENT
  Age: 80 Year
  Sex: Male

DRUGS (1)
  1. REPATHA [Suspect]
     Active Substance: EVOLOCUMAB
     Dosage: OTHER
     Route: 058

REACTIONS (3)
  - Injection site pain [None]
  - Injection site erythema [None]
  - Injection site haemorrhage [None]

NARRATIVE: CASE EVENT DATE: 20180817
